FAERS Safety Report 18048656 (Version 1)
Quarter: 2020Q3

REPORT INFORMATION
  Report Type: Spontaneous
  Country: IE (occurrence: IE)
  Receive Date: 20200721
  Receipt Date: 20200721
  Transmission Date: 20201103
  Serious: Yes (Life-Threatening, Other)
  Sender: FDA-Public Use
  Company Number: NVSC2020IE201435

PATIENT
  Age: 75 Year
  Sex: Female
  Weight: 55 kg

DRUGS (13)
  1. PANTOPRAZOLE [Concomitant]
     Active Substance: PANTOPRAZOLE
     Indication: GASTROOESOPHAGEAL REFLUX PROPHYLAXIS
     Dosage: 40 MG, Q24H (PATIENT TAKING PRE?ADMISSION? DURATION UNKNOWN)
     Route: 065
  2. LEVOTHYROXINE. [Concomitant]
     Active Substance: LEVOTHYROXINE
     Indication: HYPOTHYROIDISM
     Dosage: 50 UG, Q24H (PATIENT TAKING PRE?ADMISSION? DURATION UNKNOWN)
     Route: 065
  3. LERCANIDIPINE [Concomitant]
     Active Substance: LERCANIDIPINE
     Indication: HYPERTENSION
     Dosage: 10MG ODPATIENT TAKING PRE?ADMISSION? DURATION UNKNOWN.
     Route: 065
  4. PARACETAMOL [Concomitant]
     Active Substance: ACETAMINOPHEN
     Indication: PRODUCT USED FOR UNKNOWN INDICATION
     Dosage: 1 G, PRN (PATIENT TAKING PRE?ADMISSION? DURATION UNKNOWN.)
     Route: 065
  5. NEBIVOLOL. [Concomitant]
     Active Substance: NEBIVOLOL
     Indication: HYPERTENSION
     Dosage: 1.25 MG, Q24H (PATIENT TAKING PRE?ADMISSION? DURATION UNKNOWN.)
     Route: 065
  6. PIPERACILLIN/TAZOBACTAM 2 G/0.25 G POWDER FOR SOLUTION FOR INFUSION [Suspect]
     Active Substance: PIPERACILLIN SODIUM\TAZOBACTAM SODIUM
     Indication: INFECTION PROPHYLAXIS
     Dosage: 4.5 G, Q8H (4.5G THREE TIMES A DAY. RECEIVED APPROXIMATELY THREE QUARTERS OF FIRST DOSE)
     Route: 042
     Dates: start: 20200316, end: 20200316
  7. GENTICIN [Concomitant]
     Active Substance: GENTAMICIN SULFATE
     Indication: PRODUCT USED FOR UNKNOWN INDICATION
     Dosage: 220MG STAT
     Route: 065
  8. ONEALFA [Concomitant]
     Active Substance: ALFACALCIDOL
     Indication: PRODUCT USED FOR UNKNOWN INDICATION
     Dosage: 0.25 UG, Q24H(PATIENT TAKING PRE?ADMISSION? DURATION UNKNOWN.)
     Route: 065
  9. SENOKOT [Concomitant]
     Active Substance: SENNOSIDES
     Indication: PRODUCT USED FOR UNKNOWN INDICATION
     Dosage: 15 MG, PRN (PATIENT TAKING PRE?ADMISSION? DURATION UNKNOWN.)
     Route: 065
  10. ASPIRINE [Concomitant]
     Active Substance: ASPIRIN
     Indication: ANTIPLATELET THERAPY
     Dosage: 75 MG, Q24H (PATIENT TAKING PRE?ADMISSION? DURATION UNKNOWN)
     Route: 065
  11. ZOLPIDEM [Concomitant]
     Active Substance: ZOLPIDEM TARTRATE
     Indication: PRODUCT USED FOR UNKNOWN INDICATION
     Dosage: 5 MG, Q24H (PATIENT TAKING PRE?ADMISSION? DURATION UNKNOWN)
     Route: 065
  12. CO?AMOXICLAV [Concomitant]
     Active Substance: AMOXICILLIN\CLAVULANATE POTASSIUM
     Indication: INFECTION
     Dosage: 1.2G TDS
     Route: 065
     Dates: start: 20200316, end: 20200316
  13. CIPROFLOXACIN. [Concomitant]
     Active Substance: CIPROFLOXACIN
     Indication: PRODUCT USED FOR UNKNOWN INDICATION
     Dosage: 400MG BD IV
     Route: 042
     Dates: start: 20200316, end: 20200316

REACTIONS (8)
  - Dyspnoea [Recovered/Resolved]
  - Malaise [Recovered/Resolved]
  - Oxygen saturation decreased [Recovered/Resolved]
  - Anaphylactic reaction [Recovered/Resolved]
  - Tachycardia [Recovered/Resolved]
  - Hypertension [Recovered/Resolved]
  - Respiratory rate increased [Recovered/Resolved]
  - Chills [Recovered/Resolved]

NARRATIVE: CASE EVENT DATE: 20200316
